FAERS Safety Report 21248605 (Version 1)
Quarter: 2022Q3

REPORT INFORMATION
  Report Type: Spontaneous
  Country: CN (occurrence: CN)
  Receive Date: 20220824
  Receipt Date: 20220824
  Transmission Date: 20221026
  Serious: Yes (Other)
  Sender: FDA-Public Use
  Company Number: None

PATIENT
  Age: 58 Year
  Sex: Female
  Weight: 64 kg

DRUGS (5)
  1. CYCLOPHOSPHAMIDE [Suspect]
     Active Substance: CYCLOPHOSPHAMIDE
     Indication: Breast cancer female
     Dosage: 1000 MG, QD DILUTED WITH SODIUM CHLORIDE, EC-T REGIMEN CHEMOTHERAPY,
     Route: 041
     Dates: start: 20220719, end: 20220719
  2. SODIUM CHLORIDE [Suspect]
     Active Substance: SODIUM CHLORIDE
     Indication: Medication dilution
     Dosage: 100 ML, QD DILUTED WITH CYCLOPHOSPHAMIDE
     Route: 041
     Dates: start: 20220719, end: 20220719
  3. SODIUM CHLORIDE [Suspect]
     Active Substance: SODIUM CHLORIDE
     Dosage: 500 ML, QD DILUTED WITH EPIRUBICIN HYDROCHLORIDE
     Route: 041
     Dates: start: 20220719, end: 20220719
  4. EPIRUBICIN HYDROCHLORIDE [Suspect]
     Active Substance: EPIRUBICIN HYDROCHLORIDE
     Indication: Breast cancer female
     Dosage: 150 MG, QD DILUTED WITH SODIUM CHLORIDE, EC-T REGIMEN CHEMOTHERAPY,
     Route: 041
     Dates: start: 20220719, end: 20220719
  5. LEUCOGEN [Concomitant]
     Active Substance: LEUCOGEN
     Indication: Product used for unknown indication
     Dosage: TID (20) MG/2 BOXES, TOTAL DAYS: 21
     Route: 048

REACTIONS (4)
  - Myelosuppression [Recovered/Resolved]
  - Granulocyte count decreased [Recovered/Resolved]
  - Pyrexia [Recovered/Resolved]
  - Frigophobia [Unknown]

NARRATIVE: CASE EVENT DATE: 20220726
